FAERS Safety Report 8524088-1 (Version None)
Quarter: 2012Q3

REPORT INFORMATION
  Report Type: 
  Country: None (occurrence: None)
  Receive Date: 20120720
  Receipt Date: 20120711
  Transmission Date: 20120928
  Serious: Yes (Hospitalization)
  Sender: FDA-Public Use
  Company Number: TR-JNJFOC-20120706181

PATIENT
  Sex: Male
  Weight: 60 kg

DRUGS (6)
  1. AKINETON [Concomitant]
     Indication: SCHIZOPHRENIA, PARANOID TYPE
     Route: 030
     Dates: start: 20111219, end: 20111220
  2. RISPERDAL [Suspect]
     Indication: SCHIZOPHRENIA, PARANOID TYPE
     Route: 048
     Dates: start: 20120102, end: 20120412
  3. AKINETON [Concomitant]
     Route: 048
     Dates: start: 20111221, end: 20120412
  4. RISPERIDONE [Concomitant]
     Route: 048
     Dates: start: 20120102, end: 20120102
  5. RISPERIDONE [Concomitant]
     Indication: SCHIZOPHRENIA, PARANOID TYPE
     Route: 048
     Dates: start: 20111221, end: 20111221
  6. CHLORPROMAZINE HCL [Concomitant]
     Indication: SCHIZOPHRENIA, PARANOID TYPE
     Route: 048
     Dates: start: 20120103, end: 20120103

REACTIONS (2)
  - SUICIDAL IDEATION [None]
  - ERECTILE DYSFUNCTION [None]
